FAERS Safety Report 19417272 (Version 1)
Quarter: 2021Q2

REPORT INFORMATION
  Report Type: Spontaneous
  Country: US (occurrence: US)
  Receive Date: 20210614
  Receipt Date: 20210614
  Transmission Date: 20210717
  Serious: Yes (Death)
  Sender: FDA-Public Use
  Company Number: None

PATIENT
  Age: 87 Year
  Sex: Female

DRUGS (1)
  1. OCTREOTIDE 200MCG [Suspect]
     Active Substance: OCTREOTIDE
     Indication: SMALL INTESTINE CARCINOMA
     Dosage: ?          OTHER DOSE:200 MCG; 3 TO 4 A DAY AS NEEDED FOR DIARRHEA?
     Route: 058
     Dates: start: 20190430

REACTIONS (1)
  - Death [None]

NARRATIVE: CASE EVENT DATE: 20210611
